FAERS Safety Report 11859615 (Version 1)
Quarter: 2015Q4

REPORT INFORMATION
  Report Type: Spontaneous
  Country: US (occurrence: US)
  Receive Date: 20151221
  Receipt Date: 20151221
  Transmission Date: 20160305
  Serious: No
  Sender: FDA-Public Use
  Company Number: CHPA2015US015152

PATIENT
  Age: 69 Year
  Sex: Male

DRUGS (2)
  1. VOLTAREN [Suspect]
     Active Substance: DICLOFENAC SODIUM
     Indication: MUSCULOSKELETAL PAIN
     Dosage: 2 G, QID
     Route: 061
     Dates: start: 20151218
  2. VOLTAREN [Suspect]
     Active Substance: DICLOFENAC SODIUM
     Indication: DISCOMFORT

REACTIONS (2)
  - Product use issue [Unknown]
  - Therapeutic response unexpected [Unknown]

NARRATIVE: CASE EVENT DATE: 20151218
